FAERS Safety Report 5685382-5 (Version None)
Quarter: 2008Q1

REPORT INFORMATION
  Report Type: 
  Country: None (occurrence: None)
  Receive Date: 20080328
  Receipt Date: 20080318
  Transmission Date: 20080703
  Serious: Yes (Other)
  Sender: FDA-Public Use
  Company Number: US-PFIZER INC-2008025640

PATIENT
  Sex: Female
  Weight: 68.636 kg

DRUGS (12)
  1. NEURONTIN [Suspect]
     Indication: MIGRAINE
     Route: 048
  2. CYMBALTA [Concomitant]
  3. DILTIAZEM [Concomitant]
  4. GLUCAGEN [Concomitant]
  5. INSULIN [Concomitant]
  6. OXYCONTIN [Concomitant]
  7. NEXIUM [Concomitant]
  8. TAMOXIFEN CITRATE [Concomitant]
  9. REMERON [Concomitant]
  10. ALL OTHER THERAPEUTIC PRODUCTS [Concomitant]
  11. AMBIEN [Concomitant]
  12. VITAMINS [Concomitant]

REACTIONS (1)
  - BLOOD CREATINE PHOSPHOKINASE INCREASED [None]
